FAERS Safety Report 4418019-3 (Version None)
Quarter: 2004Q3

REPORT INFORMATION
  Report Type: 
  Country: None (occurrence: None)
  Receive Date: 20040803
  Receipt Date: 20040719
  Transmission Date: 20050211
  Serious: Yes (Hospitalization)
  Sender: FDA-Public Use
  Company Number: 199753

PATIENT
  Age: 42 Year
  Sex: Female
  Weight: 63.05 kg

DRUGS (5)
  1. AVONEX [Suspect]
     Indication: MULTIPLE SCLEROSIS
     Dosage: 30 MCG QW IM
     Route: 030
     Dates: start: 19960101, end: 20000101
  2. SEROQUEL [Concomitant]
  3. WELLBUTRIN [Concomitant]
  4. MEDICATIONS (NOS) [Concomitant]
  5. AVONEX [Suspect]
     Indication: MULTIPLE SCLEROSIS
     Dosage: 30 MCG QW IM
     Route: 030
     Dates: start: 20030101

REACTIONS (12)
  - ASTHENIA [None]
  - BLADDER DISORDER [None]
  - BREAST CANCER FEMALE [None]
  - BREAST CANCER IN SITU [None]
  - BREAST MICROCALCIFICATION [None]
  - BREAST NECROSIS [None]
  - CLUMSINESS [None]
  - INFLUENZA LIKE ILLNESS [None]
  - MALIGNANT HISTIOCYTOSIS [None]
  - MULTIPLE SCLEROSIS [None]
  - MUSCULOSKELETAL STIFFNESS [None]
  - SEASONAL ALLERGY [None]
